FAERS Safety Report 9129243 (Version 1)
Quarter: 2013Q1

REPORT INFORMATION
  Report Type: Spontaneous
  Country: US (occurrence: US)
  Receive Date: 20130228
  Receipt Date: 20130228
  Transmission Date: 20140127
  Serious: No
  Sender: FDA-Public Use
  Company Number: US-ABBOTT-12P-163-1015795-00

PATIENT
  Sex: Male
  Weight: 86.26 kg

DRUGS (3)
  1. ANDROGEL [Suspect]
     Indication: BLOOD TESTOSTERONE DECREASED
     Dosage: 2 PUMPS
     Route: 061
     Dates: start: 20121025, end: 201211
  2. ANDROGEL [Suspect]
     Dosage: 4 PUMPS
     Route: 061
     Dates: start: 201211
  3. MVI [Concomitant]
     Indication: SUPPLEMENTATION THERAPY

REACTIONS (1)
  - Blood testosterone decreased [Recovered/Resolved]
